FAERS Safety Report 5931660-1 (Version None)
Quarter: 2008Q4

REPORT INFORMATION
  Report Type: 
  Country: None (occurrence: None)
  Receive Date: 20081027
  Receipt Date: 20081016
  Transmission Date: 20090506
  Serious: Yes (Death, Hospitalization, Other)
  Sender: FDA-Public Use
  Company Number: FR-ELI_LILLY_AND_COMPANY-FR200809000584

PATIENT
  Sex: Male

DRUGS (4)
  1. ALIMTA [Suspect]
     Indication: LUNG CARCINOMA CELL TYPE UNSPECIFIED STAGE IV
     Dosage: 835 MG, UNKNOWN
     Route: 042
     Dates: start: 20080606, end: 20080101
  2. ALIMTA [Suspect]
     Dosage: 635 MG, UNKNOWN
     Route: 042
     Dates: start: 20080704
  3. CELECTOL [Concomitant]
     Dosage: 200 MG, DAILY (1/D)
     Route: 048
  4. FUMAFER [Concomitant]
     Dosage: 66 MG, DAILY (1/D)
     Route: 048

REACTIONS (8)
  - ANAEMIA [None]
  - ASTHENIA [None]
  - DIARRHOEA [None]
  - GENERAL PHYSICAL HEALTH DETERIORATION [None]
  - HAEMOTHORAX [None]
  - MUSCULOSKELETAL PAIN [None]
  - NEOPLASM PROGRESSION [None]
  - PANCYTOPENIA [None]
